FAERS Safety Report 17045808 (Version 2)
Quarter: 2019Q4

REPORT INFORMATION
  Report Type: Spontaneous
  Country: US (occurrence: US)
  Receive Date: 20191118
  Receipt Date: 20191223
  Transmission Date: 20200122
  Serious: No
  Sender: FDA-Public Use
  Company Number: US-JNJFOC-20191122217

PATIENT
  Sex: Female
  Weight: 47.67 kg

DRUGS (1)
  1. ROGAINE [Suspect]
     Active Substance: MINOXIDIL
     Indication: PRODUCT USED FOR UNKNOWN INDICATION
     Route: 061

REACTIONS (5)
  - Tinnitus [Recovering/Resolving]
  - Hair growth abnormal [Recovering/Resolving]
  - Alopecia [Unknown]
  - Product use in unapproved indication [Unknown]
  - Off label use [Unknown]
